FAERS Safety Report 8560170-0 (Version None)
Quarter: 2012Q3

REPORT INFORMATION
  Report Type: 
  Country: None (occurrence: None)
  Receive Date: 20120802
  Receipt Date: 20120719
  Transmission Date: 20120928
  Serious: Yes (Hospitalization, Other)
  Sender: FDA-Public Use
  Company Number: DE-FRI-1000037522

PATIENT
  Sex: Female

DRUGS (12)
  1. ESCITALOPRAM [Suspect]
     Dosage: 10 MG
     Route: 048
     Dates: start: 20060123, end: 20060125
  2. LAMOTRIGINE [Concomitant]
     Dosage: 50 MG
     Route: 048
     Dates: start: 20060112, end: 20060122
  3. ESCITALOPRAM [Suspect]
     Dosage: 5 MG
     Route: 048
     Dates: start: 20060103, end: 20060105
  4. MIRTAZAPINE [Suspect]
     Dosage: 30 MG
     Route: 048
     Dates: start: 20060125
  5. LAMOTRIGINE [Concomitant]
     Dosage: 25 MG
     Route: 048
     Dates: start: 20051230, end: 20060111
  6. SEROQUEL [Suspect]
     Dosage: 50 MG
     Route: 048
     Dates: start: 20060103
  7. ESCITALOPRAM [Suspect]
     Dosage: 20 MG
     Route: 048
     Dates: start: 20060117, end: 20060122
  8. MIRTAZAPINE [Suspect]
     Dosage: 45 MG
     Route: 048
     Dates: start: 20060104, end: 20060124
  9. ESCITALOPRAM [Suspect]
     Dosage: 15 MG
     Route: 048
     Dates: start: 20060110, end: 20060116
  10. ESCITALOPRAM [Suspect]
     Dosage: 10 MG
     Route: 048
     Dates: start: 20060106, end: 20060109
  11. NEXIUM [Suspect]
     Dosage: 20 MG
     Route: 048
     Dates: end: 20060202
  12. MIRTAZAPINE [Suspect]
     Dosage: 30 MG
     Route: 048
     Dates: end: 20060103

REACTIONS (2)
  - POTENTIATING DRUG INTERACTION [None]
  - HYPONATRAEMIA [None]
